FAERS Safety Report 9372659 (Version 1)
Quarter: 2013Q2

REPORT INFORMATION
  Report Type: Report from Study
  Country: US (occurrence: US)
  Receive Date: 20130627
  Receipt Date: 20130627
  Transmission Date: 20140414
  Serious: Yes (Death)
  Sender: FDA-Public Use
  Company Number: US-MYLANLABS-2013S1004819

PATIENT
  Sex: Female

DRUGS (6)
  1. CLOZAPINE TABLETS [Suspect]
     Route: 048
     Dates: end: 2013
  2. VENLAFAXINE [Concomitant]
     Dosage: EXTENDED-RELEASE
     Route: 048
  3. LATANOPROST [Concomitant]
     Route: 047
  4. ADVAIR [Concomitant]
     Dosage: DISKUS
  5. METOPROLOL SUCCINATE [Concomitant]
     Dosage: EXTENDED-RELEASE
     Route: 048
  6. LORAZEPAM [Concomitant]
     Dosage: THERAPY X 1 WEEK
     Route: 048

REACTIONS (1)
  - Death [Fatal]
